FAERS Safety Report 6527145-4 (Version None)
Quarter: 2010Q1

REPORT INFORMATION
  Report Type: 
  Country: None (occurrence: None)
  Receive Date: 20100105
  Receipt Date: 20100104
  Transmission Date: 20100710
  Serious: Yes (Other)
  Sender: FDA-Public Use
  Company Number: A0808055A

PATIENT
  Sex: Female

DRUGS (2)
  1. ADVAIR DISKUS 100/50 [Suspect]
     Indication: ASTHMA
     Route: 055
  2. ALBUTEROL [Concomitant]

REACTIONS (11)
  - CHEST DISCOMFORT [None]
  - CHEST PAIN [None]
  - COUGH [None]
  - DRUG DEPENDENCE [None]
  - DYSPHONIA [None]
  - DYSPNOEA [None]
  - INCREASED UPPER AIRWAY SECRETION [None]
  - OROPHARYNGEAL DISCOMFORT [None]
  - OROPHARYNGEAL PAIN [None]
  - SPEECH DISORDER [None]
  - WITHDRAWAL SYNDROME [None]
